FAERS Safety Report 7568450-2 (Version None)
Quarter: 2011Q2

REPORT INFORMATION
  Report Type: 
  Country: None (occurrence: None)
  Receive Date: 20110623
  Receipt Date: 20110617
  Transmission Date: 20111010
  Serious: Yes (Hospitalization)
  Sender: FDA-Public Use
  Company Number: FR-GILEAD-2011-0040874

PATIENT
  Sex: Male

DRUGS (11)
  1. ATRIPLA [Suspect]
     Indication: HIV INFECTION
     Route: 048
     Dates: start: 20081101
  2. GRANOCYTE [Suspect]
     Dates: start: 20110414, end: 20110418
  3. DOCETAXEL HOSPIRA [Suspect]
     Indication: KAPOSI'S SARCOMA
     Route: 042
     Dates: start: 20100101
  4. ONDANSERTRON HYDROCHLORIDE [Suspect]
     Route: 048
     Dates: start: 20100101
  5. ESOMEPRAZOLE MAGNESIUM [Suspect]
     Route: 048
  6. BLEOMYCIN SULFATE [Concomitant]
     Indication: KAPOSI'S SARCOMA
  7. PENTACARINAT [Suspect]
     Route: 055
  8. GRANOCYTE [Suspect]
     Route: 042
     Dates: start: 20100101
  9. BACTRIM [Concomitant]
  10. FOLIC ACID [Concomitant]
  11. DOXORUBICIN HYDROCHLORIDE [Concomitant]
     Indication: KAPOSI'S SARCOMA

REACTIONS (4)
  - COUGH [None]
  - PYREXIA [None]
  - INTERSTITIAL LUNG DISEASE [None]
  - DYSPNOEA [None]
